FAERS Safety Report 24076943 (Version 1)
Quarter: 2024Q3

REPORT INFORMATION
  Report Type: Spontaneous
  Country: NL (occurrence: NL)
  Receive Date: 20240711
  Receipt Date: 20240711
  Transmission Date: 20241017
  Serious: No
  Sender: PIERRE FABRE MEDICAMENT
  Company Number: NL-PFM-2023-06254

PATIENT
  Age: 67 Year
  Sex: Female
  Weight: 52 kg

DRUGS (3)
  1. PROPRANOLOL [Suspect]
     Active Substance: PROPRANOLOL HYDROCHLORIDE
     Indication: Palpitations
     Dosage: 1 DF, DAY ( 1 PIECE PER DAY)
     Route: 065
     Dates: start: 20230716
  2. PROPRANOLOL [Suspect]
     Active Substance: PROPRANOLOL HYDROCHLORIDE
     Indication: Off label use
  3. Thimazol/Strumazol [Concomitant]
     Indication: Product used for unknown indication
     Dosage: 30 MG
     Route: 065

REACTIONS (5)
  - Muscle spasms [Recovered/Resolved]
  - Pruritus [Recovered/Resolved]
  - Product use issue [Unknown]
  - Product use in unapproved indication [Unknown]
  - Off label use [Unknown]
